FAERS Safety Report 25748549 (Version 1)
Quarter: 2025Q3

REPORT INFORMATION
  Report Type: Spontaneous
  Country: EU (occurrence: EU)
  Receive Date: 20250902
  Receipt Date: 20250902
  Transmission Date: 20251021
  Serious: Yes (Other)
  Sender: CELLTRION
  Company Number: EU-CELLTRION INC.-2025CZ030618

PATIENT

DRUGS (2)
  1. INFLIXIMAB [Suspect]
     Active Substance: INFLIXIMAB
     Indication: Product used for unknown indication
     Route: 058
     Dates: end: 20250716
  2. INFLIXIMAB [Suspect]
     Active Substance: INFLIXIMAB
     Route: 058
     Dates: end: 20250717

REACTIONS (3)
  - Back pain [Recovering/Resolving]
  - Pain in extremity [Recovering/Resolving]
  - Urinary tract infection [Recovered/Resolved]

NARRATIVE: CASE EVENT DATE: 20250619
